FAERS Safety Report 4961737-9 (Version None)
Quarter: 2006Q1

REPORT INFORMATION
  Report Type: 
  Country: None (occurrence: None)
  Receive Date: 20060329
  Receipt Date: 20060316
  Transmission Date: 20060701
  Serious: Yes (Life-Threatening)
  Sender: FDA-Public Use
  Company Number: HQWYE356916MAR06

PATIENT
  Age: 30 Year
  Sex: Male

DRUGS (10)
  1. PANTOPRAZOLE SODIUM [Suspect]
     Indication: ABDOMINAL PAIN
     Dosage: 20 MG 1X PER 1 DAY ORAL
     Route: 048
     Dates: start: 20060121, end: 20060210
  2. PANTOPRAZOLE SODIUM [Suspect]
     Indication: ABDOMINAL PAIN UPPER
     Dosage: 20 MG 1X PER 1 DAY ORAL
     Route: 048
     Dates: start: 20060121, end: 20060210
  3. PANTOPRAZOLE SODIUM [Suspect]
     Indication: DYSPEPSIA
     Dosage: 20 MG 1X PER 1 DAY ORAL
     Route: 048
     Dates: start: 20060121, end: 20060210
  4. PANTOPRAZOLE SODIUM [Suspect]
     Indication: PELVIC PAIN
     Dosage: 20 MG 1X PER 1 DAY ORAL
     Route: 048
     Dates: start: 20060121, end: 20060210
  5. PANTOPRAZOLE SODIUM [Suspect]
     Dosage: UNKNOWN
     Route: 065
     Dates: start: 20060101
  6. RISPERDAL [Concomitant]
  7. DEPAKENE [Concomitant]
  8. CIATYL-Z (ZUCLOPENTHIXOL HYDROCHLORIDE) [Concomitant]
  9. DIAZEPAM [Concomitant]
  10. AKINETON [Concomitant]

REACTIONS (3)
  - ALCOHOLIC LIVER DISEASE [None]
  - HEPATIC STEATOSIS [None]
  - HEPATITIS TOXIC [None]
